FAERS Safety Report 22004661 (Version 1)
Quarter: 2023Q1

REPORT INFORMATION
  Report Type: Spontaneous
  Country: IN (occurrence: IN)
  Receive Date: 20230217
  Receipt Date: 20230217
  Transmission Date: 20230418
  Serious: Yes (Hospitalization)
  Sender: FDA-Public Use
  Company Number: IN-MYLANLABS-2023M1015077

PATIENT
  Age: 18 Year
  Sex: Female

DRUGS (3)
  1. TACROLIMUS [Suspect]
     Active Substance: TACROLIMUS
     Indication: Immunosuppressant drug therapy
     Dosage: UNK
     Route: 065
  2. MYCOPHENOLATE MOFETIL [Suspect]
     Active Substance: MYCOPHENOLATE MOFETIL
     Indication: Immunosuppressant drug therapy
     Dosage: UNK
     Route: 065
  3. PREDNISONE [Suspect]
     Active Substance: PREDNISONE
     Indication: Immunosuppressant drug therapy
     Dosage: UNK
     Route: 065

REACTIONS (7)
  - Listeriosis [Recovering/Resolving]
  - Encephalitis [Recovering/Resolving]
  - Seizure [Recovering/Resolving]
  - Depressed level of consciousness [Recovering/Resolving]
  - Hypocalcaemia [Recovering/Resolving]
  - Hyponatraemia [Recovering/Resolving]
  - Renal impairment [Recovering/Resolving]
